FAERS Safety Report 9118332 (Version 1)
Quarter: 2013Q1

REPORT INFORMATION
  Report Type: Spontaneous
  Country: DK (occurrence: None)
  Receive Date: 20130128
  Receipt Date: 20130128
  Transmission Date: 20140127
  Serious: Yes (Hospitalization)
  Sender: FDA-Public Use
  Company Number: 2013MA000570

PATIENT
  Age: 64 Year
  Sex: Female

DRUGS (2)
  1. FEVERALL [Suspect]
     Indication: TOOTHACHE
     Route: 048
     Dates: start: 20121115, end: 20121116
  2. TRAMADOL HYDROCHLORIDE TABLETS, 50 MG (PUREPAC) (TRAMADOL) [Suspect]
     Indication: TOOTHACHE
     Route: 048
     Dates: start: 20121115, end: 20121116

REACTIONS (2)
  - Confusional state [None]
  - Vomiting [None]
